FAERS Safety Report 4449947-0 (Version None)
Quarter: 2004Q3

REPORT INFORMATION
  Report Type: 
  Country: None (occurrence: None)
  Receive Date: 20040915
  Receipt Date: 20040909
  Transmission Date: 20050211
  Serious: Yes (Other)
  Sender: FDA-Public Use
  Company Number: DE-GLAXOSMITHKLINE-D0044646A

PATIENT
  Age: 40 Year
  Sex: Female
  Weight: 70 kg

DRUGS (6)
  1. QUILONUM RETARD [Suspect]
     Route: 048
     Dates: start: 20030909, end: 20031117
  2. ZOLOFT [Suspect]
     Route: 048
     Dates: start: 20031020, end: 20031117
  3. SAROTEN RETARD [Suspect]
     Route: 048
     Dates: start: 20030909, end: 20031117
  4. VOLTAREN [Concomitant]
     Dosage: 1TAB THREE TIMES PER DAY
     Route: 048
     Dates: start: 20011001
  5. VOLTAREN [Concomitant]
     Route: 050
     Dates: start: 20011001
  6. ANALGESICS (UNKNOWN TYPE) [Concomitant]
     Route: 048
     Dates: start: 20011001

REACTIONS (1)
  - HEPATITIS [None]
